FAERS Safety Report 12907313 (Version 1)
Quarter: 2016Q4

REPORT INFORMATION
  Report Type: Spontaneous
  Country: US (occurrence: US)
  Receive Date: 20161103
  Receipt Date: 20161103
  Transmission Date: 20170207
  Serious: Yes (Disabling)
  Sender: FDA-Public Use
  Company Number: US-009507513-1610USA015078

PATIENT
  Sex: Female

DRUGS (1)
  1. NEXPLANON [Suspect]
     Active Substance: ETONOGESTREL
     Indication: CONTRACEPTION
     Dosage: 1 IMPLANT, UNK
     Route: 059

REACTIONS (6)
  - Haematoma [Unknown]
  - Inflammation [Unknown]
  - Implant site extravasation [Unknown]
  - Nerve compression [Unknown]
  - Device deployment issue [Unknown]
  - Migration of implanted drug [Not Recovered/Not Resolved]
